FAERS Safety Report 10048384 (Version 6)
Quarter: 2015Q2

REPORT INFORMATION
  Report Type: Spontaneous
  Country: US (occurrence: US)
  Receive Date: 20140331
  Receipt Date: 20150609
  Transmission Date: 20150821
  Serious: Yes (Death, Hospitalization, Disabling, Other)
  Sender: FDA-Public Use
  Company Number: US-009507513-1403USA013501

PATIENT
  Sex: Female
  Weight: 88.89 kg

DRUGS (1)
  1. JANUVIA [Suspect]
     Active Substance: SITAGLIPTIN PHOSPHATE
     Indication: TYPE 2 DIABETES MELLITUS
     Dosage: 100 MG, QD
     Route: 048
     Dates: start: 20101210, end: 20130607

REACTIONS (39)
  - Pancreaticoduodenectomy [Unknown]
  - Asthenia [Unknown]
  - Pseudomonas infection [Recovered/Resolved]
  - Constipation [Unknown]
  - Traumatic liver injury [Unknown]
  - Enterocutaneous fistula [Recovering/Resolving]
  - Klebsiella infection [Recovered/Resolved]
  - Pancreatitis [Recovered/Resolved]
  - Abscess drainage [Unknown]
  - Abdominal hernia [Unknown]
  - Asthenia [Unknown]
  - Adenocarcinoma pancreas [Not Recovered/Not Resolved]
  - Gastrostomy [Unknown]
  - Dyspnoea [Unknown]
  - Localised intraabdominal fluid collection [Recovered/Resolved]
  - Rectal haemorrhage [Unknown]
  - Toxicity to various agents [Unknown]
  - Jejunostomy [Unknown]
  - Fatigue [Unknown]
  - Uterine leiomyoma [Unknown]
  - Ovarian germ cell teratoma benign [Unknown]
  - Emotional disorder [Not Recovered/Not Resolved]
  - Dehydration [Unknown]
  - Metastases to liver [Unknown]
  - Back pain [Unknown]
  - Ovarian cyst [Unknown]
  - Aortic arteriosclerosis [Unknown]
  - Renal cyst [Unknown]
  - Cerebrovascular accident [Recovered/Resolved]
  - Death [Fatal]
  - Asthenia [Unknown]
  - Gallbladder disorder [Recovered/Resolved]
  - Bile duct obstruction [Unknown]
  - Oedema peripheral [Unknown]
  - Cholecystectomy [Unknown]
  - Failure to thrive [Unknown]
  - Cytopenia [Unknown]
  - Disease progression [Unknown]
  - Atelectasis [Unknown]

NARRATIVE: CASE EVENT DATE: 2012
